FAERS Safety Report 18625291 (Version 1)
Quarter: 2020Q4

REPORT INFORMATION
  Report Type: Spontaneous
  Country: CN (occurrence: CN)
  Receive Date: 20201216
  Receipt Date: 20201216
  Transmission Date: 20210114
  Serious: Yes (Other)
  Sender: FDA-Public Use
  Company Number: CN-GLAXOSMITHKLINE-CN2020APC243692

PATIENT
  Sex: Female

DRUGS (3)
  1. METHYLPREDNISOLONE TABLET [Concomitant]
     Active Substance: METHYLPREDNISOLONE
     Dosage: 30 MG, QD
     Route: 048
     Dates: start: 20201208
  2. METHYLPREDNISOLONE TABLET [Concomitant]
     Active Substance: METHYLPREDNISOLONE
     Indication: SYSTEMIC LUPUS ERYTHEMATOSUS
     Dosage: 40 MG, QD
     Dates: start: 20201110
  3. BENLYSTA [Suspect]
     Active Substance: BELIMUMAB
     Indication: SYSTEMIC LUPUS ERYTHEMATOSUS
     Dosage: 600 MG, QD, 120MG/VIAL
     Route: 041
     Dates: start: 20201110, end: 20201208

REACTIONS (1)
  - Epilepsy [Recovered/Resolved]

NARRATIVE: CASE EVENT DATE: 20201112
